FAERS Safety Report 7625578-6 (Version None)
Quarter: 2011Q3

REPORT INFORMATION
  Report Type: 
  Country: None (occurrence: None)
  Receive Date: 20110713
  Receipt Date: 20110706
  Transmission Date: 20111222
  Serious: Yes (Hospitalization, Other)
  Sender: FDA-Public Use
  Company Number: 2010SP026331

PATIENT
  Age: 31 Year
  Sex: Female
  Weight: 82.5547 kg

DRUGS (2)
  1. SEROQUEL [Suspect]
     Indication: ANXIETY
     Dates: start: 20080101, end: 20080101
  2. NUVARING [Suspect]
     Indication: CONTRACEPTION
     Dates: start: 20070531, end: 20080101

REACTIONS (20)
  - PULMONARY EMBOLISM [None]
  - WEIGHT INCREASED [None]
  - CONTUSION [None]
  - FATIGUE [None]
  - MALAISE [None]
  - HYPERGLYCAEMIA [None]
  - SINUS TACHYCARDIA [None]
  - DRUG ABUSE [None]
  - CALCULUS URETERIC [None]
  - DEEP VEIN THROMBOSIS [None]
  - COUGH [None]
  - DYSPEPSIA [None]
  - PAIN [None]
  - OEDEMA PERIPHERAL [None]
  - UPPER RESPIRATORY TRACT INFECTION [None]
  - SNORING [None]
  - VAGINAL HAEMORRHAGE [None]
  - GLYCOSYLATED HAEMOGLOBIN INCREASED [None]
  - HEADACHE [None]
  - POLLAKIURIA [None]
